FAERS Safety Report 19748703 (Version 1)
Quarter: 2021Q3

REPORT INFORMATION
  Report Type: Spontaneous
  Country: DE (occurrence: DE)
  Receive Date: 20210826
  Receipt Date: 20210826
  Transmission Date: 20211014
  Serious: Yes (Other)
  Sender: FDA-Public Use
  Company Number: DE-ASTRAZENECA-2021A692202

PATIENT
  Sex: Female

DRUGS (3)
  1. L?TYROXINE [Concomitant]
     Dosage: UNKNOWN
     Route: 065
  2. ROSUVASTATIN. [Concomitant]
     Active Substance: ROSUVASTATIN
     Dosage: UNKNOWN
     Route: 065
  3. FORXIGA [Suspect]
     Active Substance: DAPAGLIFLOZIN
     Indication: TYPE 1 DIABETES MELLITUS
     Dosage: 5.0MG UNKNOWN
     Route: 048
     Dates: end: 20210730

REACTIONS (4)
  - Ketoacidosis [Not Recovered/Not Resolved]
  - Visual impairment [Not Recovered/Not Resolved]
  - Tongue discomfort [Recovering/Resolving]
  - Dysgeusia [Not Recovered/Not Resolved]
